FAERS Safety Report 8329235-2 (Version None)
Quarter: 2012Q2

REPORT INFORMATION
  Report Type: 
  Country: None (occurrence: None)
  Receive Date: 20120502
  Receipt Date: 20120418
  Transmission Date: 20120825
  Serious: Yes (Death)
  Sender: FDA-Public Use
  Company Number: JP-UCBSA-054601

PATIENT
  Age: 78 Year
  Sex: Female

DRUGS (1)
  1. XYZAL [Suspect]
     Route: 048
     Dates: start: 20120326, end: 20120330

REACTIONS (1)
  - DEATH [None]
